FAERS Safety Report 8823687 (Version 1)
Quarter: 2012Q4

REPORT INFORMATION
  Report Type: 
  Country: JP (occurrence: JP)
  Receive Date: 20121003
  Receipt Date: 20121003
  Transmission Date: 20130627
  Serious: Yes (Other)
  Sender: FDA-Public Use
  Company Number: JP-PFIZER INC-2012243207

PATIENT
  Sex: Female

DRUGS (1)
  1. LYRICA [Suspect]
     Indication: SCIATICA
     Dosage: 75 mg, 1x/day
     Route: 048
     Dates: start: 20120930

REACTIONS (5)
  - Intracranial pressure increased [Unknown]
  - Dehydration [Unknown]
  - Dysstasia [Unknown]
  - Vomiting [Unknown]
  - Anxiety [Unknown]
